FAERS Safety Report 8244661-8 (Version None)
Quarter: 2012Q1

REPORT INFORMATION
  Report Type: 
  Country: None (occurrence: None)
  Receive Date: 20120329
  Receipt Date: 20111222
  Transmission Date: 20120608
  Serious: No
  Sender: FDA-Public Use
  Company Number: US-MYLANLABS-2011S1026289

PATIENT
  Age: 76 Year
  Sex: Male

DRUGS (6)
  1. ALPRAZOLAM [Concomitant]
  2. BENAZEPRIL HYDROCHLORIDE [Concomitant]
  3. FENTANYL-100 [Suspect]
     Indication: PAIN
     Dosage: CHANGE Q72HR
     Route: 062
     Dates: start: 20111220
  4. VENLAFAXINE [Concomitant]
  5. SIMVASTATIN [Concomitant]
     Indication: BLOOD CHOLESTEROL INCREASED
  6. METFORMIN HCL [Concomitant]
     Indication: DIABETES MELLITUS

REACTIONS (1)
  - DYSPHAGIA [None]
